FAERS Safety Report 7194049-6 (Version None)
Quarter: 2010Q4

REPORT INFORMATION
  Report Type: 
  Country: None (occurrence: None)
  Receive Date: 20101223
  Receipt Date: 20100924
  Transmission Date: 20110411
  Serious: No
  Sender: FDA-Public Use
  Company Number: US-AMGEN-KDL436294

PATIENT

DRUGS (1)
  1. ENBREL [Suspect]
     Indication: RHEUMATOID ARTHRITIS
     Dosage: 50 MG, QWK
     Route: 058
     Dates: start: 20090301

REACTIONS (4)
  - INJECTION SITE PAIN [None]
  - JOINT CREPITATION [None]
  - NECK PAIN [None]
  - PRODUCT QUALITY ISSUE [None]
